FAERS Safety Report 20427666 (Version 1)
Quarter: 2022Q1

REPORT INFORMATION
  Report Type: Report from Study
  Country: US (occurrence: US)
  Receive Date: 20220204
  Receipt Date: 20220204
  Transmission Date: 20220423
  Serious: No
  Sender: FDA-Public Use
  Company Number: US-EXELIXIS-CABO-21042490

PATIENT
  Sex: Male

DRUGS (3)
  1. CABOMETYX [Suspect]
     Active Substance: CABOZANTINIB S-MALATE
     Indication: Renal cancer
     Dosage: 60 MG QOD, ALTERNATING WITH 40 MG QOD
     Route: 048
     Dates: start: 202012, end: 202104
  2. CLONIDINE [Concomitant]
     Active Substance: CLONIDINE
  3. BENZONATATE [Concomitant]
     Active Substance: BENZONATATE

REACTIONS (7)
  - Abdominal discomfort [Unknown]
  - Oral pain [Unknown]
  - Blood pressure increased [Unknown]
  - Blood glucose increased [Unknown]
  - Fatigue [Unknown]
  - Nausea [Unknown]
  - Vomiting [Unknown]
